FAERS Safety Report 15742138 (Version 1)
Quarter: 2018Q4

REPORT INFORMATION
  Report Type: Spontaneous
  Country: GB (occurrence: GB)
  Receive Date: 20181219
  Receipt Date: 20181219
  Transmission Date: 20190205
  Serious: Yes (Hospitalization)
  Sender: FDA-Public Use
  Company Number: GB-LPDUSPRD-20182406

PATIENT
  Age: 31 Year
  Sex: Female
  Weight: 62 kg

DRUGS (8)
  1. FERINJECT [Suspect]
     Active Substance: FERRIC CARBOXYMALTOSE
     Dosage: 1000 MG
     Route: 041
     Dates: start: 20181109, end: 20181109
  2. FOLIC ACID. [Concomitant]
     Active Substance: FOLIC ACID
     Dosage: UNKNOWN
     Route: 065
  3. METHOTREXATE. [Concomitant]
     Active Substance: METHOTREXATE
     Dosage: 20 MG, 1 WK
     Route: 065
  4. PARACETAMOL AND DIHYDROCODEINE [Concomitant]
     Dosage: UNKNOWN
     Route: 065
  5. OMEPRAZOLE. [Concomitant]
     Active Substance: OMEPRAZOLE
     Dosage: 20 MG, 1 D
     Route: 065
  6. RAMIPRIL. [Concomitant]
     Active Substance: RAMIPRIL
     Dosage: UNKNOWN
     Route: 065
  7. NAPROXEN. [Concomitant]
     Active Substance: NAPROXEN
     Dosage: 1000 MG, 1 D
     Route: 065
  8. COLECALCIFEROL [Concomitant]
     Active Substance: CHOLECALCIFEROL
     Dosage: UNKNOWN
     Route: 065

REACTIONS (5)
  - Vomiting [Recovering/Resolving]
  - Malaise [Recovering/Resolving]
  - Headache [Recovering/Resolving]
  - Oropharyngeal pain [Recovering/Resolving]
  - Infusion site rash [Recovered/Resolved]

NARRATIVE: CASE EVENT DATE: 20181109
